FAERS Safety Report 7742216-2 (Version None)
Quarter: 2011Q3

REPORT INFORMATION
  Report Type: 
  Country: None (occurrence: None)
  Receive Date: 20110907
  Receipt Date: 20110907
  Transmission Date: 20111222
  Serious: Yes (Hospitalization)
  Sender: FDA-Public Use
  Company Number: None

PATIENT
  Age: 85 Year
  Sex: Female
  Weight: 87.2 kg

DRUGS (5)
  1. CIPROFLOXACIN [Concomitant]
  2. LISINOPRIL [Concomitant]
  3. AMLODIPINE [Concomitant]
  4. DECITABINE [Suspect]
     Indication: MYELODYSPLASTIC SYNDROME
     Dosage: 0.2MG/KG 3X/WK SUB-Q INJ ONLY ONE DOSE GIVEN 8/29
     Route: 058
  5. TYLENOL-500 [Concomitant]

REACTIONS (1)
  - FEBRILE NEUTROPENIA [None]
